FAERS Safety Report 5568624-6 (Version None)
Quarter: 2007Q4

REPORT INFORMATION
  Report Type: 
  Country: None (occurrence: None)
  Receive Date: 20071220
  Receipt Date: 20071213
  Transmission Date: 20080405
  Serious: Yes (Disabling, Other)
  Sender: FDA-Public Use
  Company Number: PHHO2007JP19036

PATIENT
  Age: 71 Year
  Sex: Female

DRUGS (4)
  1. AREDIA [Suspect]
     Indication: METASTASES TO BONE
     Dosage: 45MG EVERY 2 WEEKS
     Route: 042
     Dates: start: 20041004, end: 20060504
  2. ZOMETA [Suspect]
     Indication: METASTASES TO BONE
     Route: 042
  3. TAXOL [Concomitant]
  4. ARIMIDEX [Concomitant]

REACTIONS (6)
  - ALTERED STATE OF CONSCIOUSNESS [None]
  - CEREBRAL INFARCTION [None]
  - DISEASE PROGRESSION [None]
  - METASTASES TO CENTRAL NERVOUS SYSTEM [None]
  - OSTEONECROSIS [None]
  - SKIN DISORDER [None]
